FAERS Safety Report 10776047 (Version 1)
Quarter: 2015Q1

REPORT INFORMATION
  Report Type: Other
  Country: US (occurrence: US)
  Receive Date: 20150209
  Receipt Date: 20150209
  Transmission Date: 20150721
  Serious: Yes (Death)
  Sender: FDA-Public Use
  Company Number: US-FRI-1000074277

PATIENT
  Age: 56 Year
  Sex: Male

DRUGS (4)
  1. ETHANOL (NONBEVERAGE) [Suspect]
     Active Substance: ALCOHOL
  2. CITALOPRAM [Suspect]
     Active Substance: CITALOPRAM HYDROBROMIDE
  3. OXYCODONE [Suspect]
     Active Substance: OXYCODONE
  4. METOPROLOL [Suspect]
     Active Substance: METOPROLOL

REACTIONS (3)
  - Respiratory arrest [None]
  - Drug abuse [Fatal]
  - Cardiac arrest [None]
